FAERS Safety Report 6614006-5 (Version None)
Quarter: 2010Q1

REPORT INFORMATION
  Report Type: 
  Country: None (occurrence: None)
  Receive Date: 20100304
  Receipt Date: 20100224
  Transmission Date: 20100710
  Serious: Yes (Other)
  Sender: FDA-Public Use
  Company Number: ZA-ABBOTT-10P-143-0628589-00

PATIENT
  Age: 43 Year
  Sex: Female

DRUGS (15)
  1. EPILIM [Suspect]
     Indication: CONVULSION PROPHYLAXIS
     Dates: start: 20100204, end: 20100214
  2. EPILIM [Suspect]
     Route: 042
     Dates: start: 20100214
  3. EPILIM [Suspect]
     Route: 042
     Dates: start: 20100216, end: 20100217
  4. EPILIM [Suspect]
     Route: 042
  5. EPILIM [Suspect]
     Route: 042
  6. EPILIM [Suspect]
     Route: 042
     Dates: start: 20100217
  7. EPILIM [Suspect]
     Route: 048
     Dates: start: 20100218
  8. MERONEM [Concomitant]
     Indication: DRUG USE FOR UNKNOWN INDICATION
     Dates: start: 20100210
  9. DECADRON [Concomitant]
     Indication: DRUG USE FOR UNKNOWN INDICATION
  10. ATIVAN [Concomitant]
     Indication: DRUG USE FOR UNKNOWN INDICATION
  11. DIAMOX SRC [Concomitant]
     Indication: DRUG USE FOR UNKNOWN INDICATION
  12. PANTOPRAZOLE [Concomitant]
     Indication: DRUG USE FOR UNKNOWN INDICATION
  13. COMBIVENT [Concomitant]
     Indication: DRUG USE FOR UNKNOWN INDICATION
  14. BISOLVON [Concomitant]
     Indication: DRUG USE FOR UNKNOWN INDICATION
  15. DF118 [Concomitant]
     Indication: DRUG USE FOR UNKNOWN INDICATION

REACTIONS (2)
  - ANTICONVULSANT DRUG LEVEL DECREASED [None]
  - CONVULSION [None]
